FAERS Safety Report 9642809 (Version 4)
Quarter: 2014Q3

REPORT INFORMATION
  Report Type: Report from Study
  Country: US (occurrence: US)
  Receive Date: 20131024
  Receipt Date: 20140922
  Transmission Date: 20150326
  Serious: Yes (Hospitalization, Other)
  Sender: FDA-Public Use
  Company Number: US-SA-2013SA105970

PATIENT
  Age: 61 Year
  Sex: Female

DRUGS (17)
  1. MELOXICAM. [Concomitant]
     Active Substance: MELOXICAM
  2. LAMICTAL [Concomitant]
     Active Substance: LAMOTRIGINE
  3. SPIRONOLACTONE. [Concomitant]
     Active Substance: SPIRONOLACTONE
  4. LEVOXYL [Concomitant]
     Active Substance: LEVOTHYROXINE SODIUM
  5. GABAPENTIN. [Concomitant]
     Active Substance: GABAPENTIN
  6. DEMADEX [Concomitant]
     Active Substance: TORSEMIDE
  7. AUBAGIO [Suspect]
     Active Substance: TERIFLUNOMIDE
     Indication: MULTIPLE SCLEROSIS
     Route: 048
     Dates: start: 20130912, end: 20140901
  8. CLONAZEPAM. [Concomitant]
     Active Substance: CLONAZEPAM
  9. MIRALAX [Concomitant]
     Active Substance: POLYETHYLENE GLYCOL 3350
  10. COLCHICINE. [Concomitant]
     Active Substance: COLCHICINE
  11. PROTONIX [Concomitant]
     Active Substance: PANTOPRAZOLE SODIUM
  12. PLAVIX [Concomitant]
     Active Substance: CLOPIDOGREL BISULFATE
  13. REGLAN [Concomitant]
     Active Substance: METOCLOPRAMIDE HYDROCHLORIDE
  14. HUMULIN NOS [Concomitant]
     Active Substance: INSULIN HUMAN
  15. DILTIAZEM [Concomitant]
     Active Substance: DILTIAZEM
  16. CRESTOR [Concomitant]
     Active Substance: ROSUVASTATIN CALCIUM
  17. ASPIRIN. [Concomitant]
     Active Substance: ASPIRIN

REACTIONS (4)
  - Chest pain [Unknown]
  - Drug ineffective [Unknown]
  - Gout [Not Recovered/Not Resolved]
  - Gait disturbance [Unknown]
